FAERS Safety Report 5058671-5 (Version None)
Quarter: 2006Q3

REPORT INFORMATION
  Report Type: 
  Country: None (occurrence: None)
  Receive Date: 20060721
  Receipt Date: 20060712
  Transmission Date: 20061208
  Serious: Yes (Hospitalization)
  Sender: FDA-Public Use
  Company Number: FR-MERCK-0607FRA00030

PATIENT
  Age: 53 Year
  Sex: Male

DRUGS (6)
  1. INVANZ [Suspect]
     Indication: INFECTION
     Route: 041
     Dates: start: 20060223, end: 20060201
  2. INVANZ [Suspect]
     Route: 041
     Dates: start: 20060316, end: 20060414
  3. WARFARIN SODIUM [Suspect]
     Indication: THROMBOPHLEBITIS
     Route: 048
     Dates: start: 20060405
  4. FLUINDIONE [Suspect]
     Indication: THROMBOPHLEBITIS
     Route: 048
     Dates: start: 20060219, end: 20060223
  5. FLUINDIONE [Suspect]
     Route: 048
     Dates: start: 20060224, end: 20060201
  6. INSULIN, BIPHASIC ISOPHANE [INJECTION] [Concomitant]
     Indication: DIABETES MELLITUS
     Route: 058

REACTIONS (2)
  - DRUG INTERACTION [None]
  - THERAPEUTIC RESPONSE DECREASED [None]
